FAERS Safety Report 7339723-3 (Version None)
Quarter: 2011Q1

REPORT INFORMATION
  Report Type: 
  Country: None (occurrence: None)
  Receive Date: 20110309
  Receipt Date: 20110225
  Transmission Date: 20110831
  Serious: Yes (Hospitalization, Other)
  Sender: FDA-Public Use
  Company Number: AT-ELI_LILLY_AND_COMPANY-AT201102007196

PATIENT
  Age: 67 Year
  Sex: Male

DRUGS (3)
  1. CALCIUM VIT D [Concomitant]
  2. FORTEO [Suspect]
     Indication: OSTEOPOROSIS
     Dosage: UNK UNK, DAILY (1/D)
     Route: 058
     Dates: start: 20100222
  3. VOLTAREN                                /SCH/ [Concomitant]

REACTIONS (1)
  - CEREBROVASCULAR ACCIDENT [None]
